FAERS Safety Report 12367421 (Version 1)
Quarter: 2016Q2

REPORT INFORMATION
  Report Type: Spontaneous
  Country: US (occurrence: US)
  Receive Date: 20160513
  Receipt Date: 20160513
  Transmission Date: 20160815
  Serious: No
  Sender: FDA-Public Use
  Company Number: US-BRAINTREE LABORATORIES-150437

PATIENT
  Age: 72 Year
  Sex: Male
  Weight: 68.04 kg

DRUGS (1)
  1. NULYTELY [Suspect]
     Active Substance: POLYETHYLENE GLYCOL 3350\POTASSIUM CHLORIDE\SODIUM BICARBONATE\SODIUM CHLORIDE
     Indication: COLONOSCOPY
     Dosage: {8 OZ.
     Route: 048
     Dates: start: 20151019, end: 20151019

REACTIONS (8)
  - Disturbance in attention [None]
  - Blood pressure systolic increased [None]
  - Heart rate decreased [None]
  - Blood phosphorus decreased [None]
  - Tremor [None]
  - Blood potassium increased [None]
  - Dizziness [None]
  - Feeling abnormal [None]

NARRATIVE: CASE EVENT DATE: 20151019
